FAERS Safety Report 18279314 (Version 1)
Quarter: 2020Q3

REPORT INFORMATION
  Report Type: Report from Study
  Country: DE (occurrence: DE)
  Receive Date: 20200917
  Receipt Date: 20200917
  Transmission Date: 20201103
  Serious: Yes (Other)
  Sender: FDA-Public Use
  Company Number: DE-MYLANLABS-2020M1078646

PATIENT
  Age: 57 Year

DRUGS (2)
  1. VOLTAREN [Suspect]
     Active Substance: DICLOFENAC SODIUM
     Indication: SPINAL FRACTURE
     Dosage: UNK
     Route: 048
     Dates: start: 200211, end: 200311
  2. BACLOFEN. [Suspect]
     Active Substance: BACLOFEN
     Indication: SPINAL FRACTURE
     Dosage: UNK
     Route: 048
     Dates: start: 200211, end: 200311

REACTIONS (2)
  - Creatinine renal clearance decreased [Not Recovered/Not Resolved]
  - Blood creatinine increased [Not Recovered/Not Resolved]

NARRATIVE: CASE EVENT DATE: 20031209
